FAERS Safety Report 14916976 (Version 1)
Quarter: 2018Q2

REPORT INFORMATION
  Report Type: Report from Study
  Country: CA (occurrence: CA)
  Receive Date: 20180520
  Receipt Date: 20180520
  Transmission Date: 20180711
  Serious: Yes (Death, Hospitalization)
  Sender: FDA-Public Use
  Company Number: PHHY2018CA001496

PATIENT
  Age: 42 Year
  Sex: Female

DRUGS (1)
  1. SANDOSTATIN [Suspect]
     Active Substance: OCTREOTIDE ACETATE
     Indication: CARCINOID TUMOUR
     Dosage: QMO EVERY FOUR WEEKS
     Route: 058
     Dates: start: 201804

REACTIONS (3)
  - Death [Fatal]
  - Inappropriate schedule of drug administration [Unknown]
  - Fatigue [Unknown]

NARRATIVE: CASE EVENT DATE: 20180516
